FAERS Safety Report 11311274 (Version 2)
Quarter: 2015Q3

REPORT INFORMATION
  Report Type: Report from Study
  Country: US (occurrence: US)
  Receive Date: 20150727
  Receipt Date: 20150916
  Transmission Date: 20151125
  Serious: Yes (Hospitalization, Other)
  Sender: FDA-Public Use
  Company Number: US-GILEAD-2015-0164680

PATIENT
  Age: 22 Year
  Sex: Female

DRUGS (4)
  1. AMBRISENTAN [Suspect]
     Active Substance: AMBRISENTAN
     Indication: PULMONARY HYPERTENSION
     Dosage: 10 MG, QD
     Route: 065
     Dates: start: 20140108
  2. ADCIRCA [Concomitant]
     Active Substance: TADALAFIL
  3. AMBRISENTAN [Suspect]
     Active Substance: AMBRISENTAN
     Indication: DERMATOMYOSITIS
  4. TYVASO [Concomitant]
     Active Substance: TREPROSTINIL

REACTIONS (5)
  - Anxiety [Unknown]
  - Rheumatoid arthritis [Unknown]
  - Heart rate increased [Unknown]
  - Syncope [Unknown]
  - Nausea [Unknown]
